FAERS Safety Report 19652608 (Version 5)
Quarter: 2022Q4

REPORT INFORMATION
  Report Type: Spontaneous
  Country: US (occurrence: US)
  Receive Date: 20210803
  Receipt Date: 20221208
  Transmission Date: 20230113
  Serious: No
  Sender: FDA-Public Use
  Company Number: US-PFIZER INC-2021900828

PATIENT
  Age: 77 Year
  Sex: Female

DRUGS (3)
  1. IBRANCE [Suspect]
     Active Substance: PALBOCICLIB
     Dosage: 125 MG
     Dates: start: 20200423
  2. IBRANCE [Suspect]
     Active Substance: PALBOCICLIB
     Dosage: 125 MG
     Dates: start: 20200623
  3. LETROZOLE [Concomitant]
     Active Substance: LETROZOLE
     Dosage: UNK

REACTIONS (10)
  - Product dose omission issue [Unknown]
  - Fatigue [Not Recovered/Not Resolved]
  - Impaired quality of life [Unknown]
  - Nausea [Unknown]
  - Weight increased [Unknown]
  - Muscle atrophy [Unknown]
  - Movement disorder [Unknown]
  - Back pain [Unknown]
  - Intervertebral disc degeneration [Unknown]
  - Memory impairment [Unknown]
